FAERS Safety Report 13200816 (Version 1)
Quarter: 2017Q1

REPORT INFORMATION
  Report Type: Spontaneous
  Country: EG (occurrence: EG)
  Receive Date: 20170209
  Receipt Date: 20170209
  Transmission Date: 20170428
  Serious: Yes (Other)
  Sender: FDA-Public Use
  Company Number: EG-ROCHE-1890589

PATIENT
  Age: 62 Year
  Sex: Female

DRUGS (7)
  1. ENDOXAN [Suspect]
     Active Substance: CYCLOPHOSPHAMIDE
     Indication: NON-HODGKIN^S LYMPHOMA
     Dosage: 1 G BY IV DRIP IN 250ML SALINE
     Route: 041
     Dates: start: 20150715, end: 20151101
  2. MABTHERA [Suspect]
     Active Substance: RITUXIMAB
     Indication: NON-HODGKIN^S LYMPHOMA
     Route: 041
     Dates: start: 20150715, end: 20151101
  3. KETOLAC [Concomitant]
     Indication: ANALGESIC THERAPY
     Dosage: 30MG/2ML ADMINISTERED BEFORE STARTING CHEMOTHERAPY
     Route: 040
     Dates: start: 20150715, end: 20151101
  4. CHLORPHENIRAMINE. [Concomitant]
     Active Substance: CHLORPHENIRAMINE
     Indication: ANTIALLERGIC THERAPY
     Dosage: BEFORE CHEMOTHERAPY
     Route: 048
     Dates: start: 20150715, end: 20151101
  5. VINCRISTINE [Suspect]
     Active Substance: VINCRISTINE
     Indication: NON-HODGKIN^S LYMPHOMA
     Dosage: 20 MG IN 20 ML SALINE IV INFUSION
     Route: 041
     Dates: start: 20150715, end: 20151101
  6. MITOXANTRONE [Suspect]
     Active Substance: MITOXANTRONE HYDROCHLORIDE
     Indication: NON-HODGKIN^S LYMPHOMA
     Dosage: 20MG IV DRIP IN 200ML SALINE
     Route: 041
     Dates: start: 20150715, end: 20151101
  7. PANTOPRAZOLE [Concomitant]
     Active Substance: PANTOPRAZOLE SODIUM
     Indication: PROPHYLAXIS AGAINST GASTROINTESTINAL ULCER
     Dosage: BEFORE CHEMOTHERAPY
     Route: 041
     Dates: start: 20150715, end: 20151101

REACTIONS (5)
  - Alopecia [Recovered/Resolved]
  - Weight decreased [Recovered/Resolved]
  - Fatigue [Recovered/Resolved]
  - Pyrexia [Recovered/Resolved]
  - Neuropathy peripheral [Recovered/Resolved]

NARRATIVE: CASE EVENT DATE: 20150715
